FAERS Safety Report 7720933-8 (Version None)
Quarter: 2011Q3

REPORT INFORMATION
  Report Type: 
  Country: None (occurrence: None)
  Receive Date: 20110825
  Receipt Date: 20110811
  Transmission Date: 20111222
  Serious: Yes (Hospitalization)
  Sender: FDA-Public Use
  Company Number: 15964232

PATIENT
  Age: 58 Year
  Sex: Male

DRUGS (3)
  1. METFORMIN (METFORMIN HCL) [Concomitant]
  2. COUMADIN [Suspect]
     Dosage: 1 DOSAGE FORM AS NECESSARY ORAL
     Route: 048
     Dates: start: 20100604, end: 20110603
  3. METOPROLOL TARTRATE [Concomitant]

REACTIONS (1)
  - MELAENA [None]
